FAERS Safety Report 7027977-2 (Version None)
Quarter: 2010Q4

REPORT INFORMATION
  Report Type: 
  Country: None (occurrence: None)
  Receive Date: 20101001
  Receipt Date: 20101001
  Transmission Date: 20110411
  Serious: Yes (Hospitalization)
  Sender: FDA-Public Use
  Company Number: None

PATIENT
  Sex: Female
  Weight: 87.71 kg

DRUGS (3)
  1. CARBOPLATIN [Suspect]
     Dosage: 318 MG
  2. TAXOTERE [Suspect]
     Dosage: 116 MG
  3. TAXOL [Concomitant]

REACTIONS (3)
  - DEEP VEIN THROMBOSIS [None]
  - FATIGUE [None]
  - PULMONARY EMBOLISM [None]
